FAERS Safety Report 13988011 (Version 1)
Quarter: 2017Q3

REPORT INFORMATION
  Report Type: Report from Study
  Country: US (occurrence: US)
  Receive Date: 20170919
  Receipt Date: 20170919
  Transmission Date: 20171128
  Serious: No
  Sender: FDA-Public Use
  Company Number: PHEH2017US029826

PATIENT
  Sex: Female

DRUGS (1)
  1. COSENTYX [Suspect]
     Active Substance: SECUKINUMAB
     Indication: PRODUCT USED FOR UNKNOWN INDICATION
     Route: 058

REACTIONS (13)
  - Eye inflammation [Unknown]
  - Pain in extremity [Unknown]
  - Malaise [Unknown]
  - Eye pain [Unknown]
  - Neck pain [Unknown]
  - Asthenia [Unknown]
  - Ocular hyperaemia [Unknown]
  - Insomnia [Unknown]
  - Fibromyalgia [Unknown]
  - Arthralgia [Unknown]
  - Device issue [Unknown]
  - Sinus disorder [Unknown]
  - Incorrect dosage administered [Unknown]
